FAERS Safety Report 6224380-X (Version None)
Quarter: 2009Q2

REPORT INFORMATION
  Report Type: 
  Country: None (occurrence: None)
  Receive Date: 20090612
  Receipt Date: 20090317
  Transmission Date: 20091009
  Serious: Yes (Hospitalization)
  Sender: FDA-Public Use
  Company Number: US-ABBOTT-09P-163-0563308-00

PATIENT
  Sex: Female
  Weight: 73.094 kg

DRUGS (7)
  1. HUMIRA [Suspect]
     Indication: RHEUMATOID ARTHRITIS
     Route: 058
     Dates: start: 20070601, end: 20080101
  2. PREDNISONE [Concomitant]
     Indication: RHEUMATOID ARTHRITIS
  3. NAPROXEN [Concomitant]
     Indication: RHEUMATOID ARTHRITIS
  4. SULFASALAZINE [Concomitant]
     Indication: RHEUMATOID ARTHRITIS
     Dosage: 2 TABS IN MORNING, 1 TAB IN EVENING
  5. LISINOPRIL [Concomitant]
     Indication: HYPERTENSION
  6. DIOVAN [Concomitant]
     Indication: HYPERTENSION
  7. HYDROXYCHLOROQUINE SULFATE [Concomitant]
     Indication: RHEUMATOID ARTHRITIS

REACTIONS (5)
  - ASTHMA [None]
  - NASOPHARYNGITIS [None]
  - RASH [None]
  - TOOTH FRACTURE [None]
  - TOOTH INFECTION [None]
